FAERS Safety Report 5072334-1 (Version None)
Quarter: 2006Q3

REPORT INFORMATION
  Report Type: 
  Country: None (occurrence: None)
  Receive Date: 20060807
  Receipt Date: 20060728
  Transmission Date: 20061208
  Serious: Yes (Other)
  Sender: FDA-Public Use
  Company Number: 2006AP03561

PATIENT
  Age: 30 Year
  Sex: Female

DRUGS (2)
  1. XYLOCAINE TOPICAL FILM [Suspect]
     Indication: LOCAL ANAESTHESIA
     Dosage: ONE-QUARTER OF A TUBE
     Route: 061
     Dates: start: 20060711, end: 20060711
  2. BUSCOPAN [Concomitant]
     Dates: start: 20060711, end: 20060711

REACTIONS (2)
  - EYELID OEDEMA [None]
  - NASAL CONGESTION [None]
